FAERS Safety Report 8960331 (Version 2)
Quarter: 2014Q1

REPORT INFORMATION
  Report Type: Report from Study
  Country: JP (occurrence: JP)
  Receive Date: 20121211
  Receipt Date: 20140325
  Transmission Date: 20141002
  Serious: Yes (Hospitalization, Other)
  Sender: FDA-Public Use
  Company Number: JP-VERTEX PHARMACEUTICALS INC.-2012-025916

PATIENT
  Age: 63 Year
  Sex: Male

DRUGS (11)
  1. VX-950 (TELAPREVIR) [Suspect]
     Indication: CHRONIC HEPATITIS C
     Dosage: 1500 MG, QD
     Route: 048
     Dates: start: 20120721, end: 20120730
  2. RIBAVIRIN [Suspect]
     Indication: CHRONIC HEPATITIS C
     Dosage: 800 MG, QD
     Route: 048
     Dates: start: 20120721, end: 20120730
  3. PEGINTERFERON ALFA-2B [Suspect]
     Indication: CHRONIC HEPATITIS C
     Dosage: 100 ?G, QW
     Route: 058
     Dates: start: 20120721, end: 20120730
  4. URSO [Concomitant]
     Dosage: 600 MG, QD
     Route: 048
  5. LORFENAMIN [Concomitant]
     Dosage: 180 MG, QD
     Route: 048
     Dates: end: 20120728
  6. MUCOSTA [Concomitant]
     Dosage: 300 MG, QD
     Route: 048
     Dates: end: 20120728
  7. PIOGLITAZONE HYDROCHLORIDE [Concomitant]
     Dosage: 30 MG, QD
     Route: 048
  8. JANUVIA [Concomitant]
     Dosage: 100 MG, QD
     Route: 048
  9. OLMETEC [Concomitant]
     Dosage: 20 MG, QD
     Route: 048
  10. GLIMEPIRIDE [Concomitant]
     Dosage: 2 MG, QD
     Route: 048
  11. MEDET [Concomitant]
     Dosage: 750 MG, QD
     Route: 048
     Dates: end: 20120728

REACTIONS (3)
  - Epistaxis [Recovered/Resolved]
  - Hyperkalaemia [Recovered/Resolved]
  - Anaemia [Recovered/Resolved]
